FAERS Safety Report 16857265 (Version 1)
Quarter: 2019Q3

REPORT INFORMATION
  Report Type: Spontaneous
  Country: US (occurrence: US)
  Receive Date: 20190926
  Receipt Date: 20190926
  Transmission Date: 20191005
  Serious: No
  Sender: FDA-Public Use
  Company Number: US-ASSERTIO THERAPEUTICS, INC.-US-2018DEP001770

PATIENT

DRUGS (3)
  1. GRALISE [Suspect]
     Active Substance: GABAPENTIN
     Indication: NEURALGIA
     Dosage: 900 MG, QD
     Route: 048
     Dates: start: 2018, end: 2018
  2. GRALISE [Suspect]
     Active Substance: GABAPENTIN
     Indication: NECK PAIN
     Dosage: UNK MG, QD
     Route: 048
     Dates: start: 201804, end: 2018
  3. GRALISE [Suspect]
     Active Substance: GABAPENTIN
     Dosage: 1800 MG, QD
     Route: 048
     Dates: start: 2018

REACTIONS (3)
  - Drug titration error [Unknown]
  - Product use in unapproved indication [Unknown]
  - Product dose omission [Unknown]

NARRATIVE: CASE EVENT DATE: 2018
